FAERS Safety Report 24431782 (Version 2)
Quarter: 2024Q4

REPORT INFORMATION
  Report Type: Spontaneous
  Country: US (occurrence: US)
  Receive Date: 20241014
  Receipt Date: 20241024
  Transmission Date: 20250114
  Serious: Yes (Life-Threatening, Hospitalization, Other)
  Sender: AUROBINDO
  Company Number: US-MLMSERVICE-20240923-PI204588-00271-1

PATIENT
  Age: 57 Year
  Sex: Male

DRUGS (1)
  1. PREDNISONE [Suspect]
     Active Substance: PREDNISONE
     Indication: Focal segmental glomerulosclerosis
     Dosage: UNK (CHRONIC HIGH-DOSE THERAPY)
     Route: 065

REACTIONS (10)
  - Sepsis [Unknown]
  - Enterococcal bacteraemia [Unknown]
  - Parasitic pneumonia [Unknown]
  - Meningitis enterococcal [Unknown]
  - Bacterial translocation [Unknown]
  - Enterococcal gastroenteritis [Unknown]
  - Disseminated strongyloidiasis [Unknown]
  - Encephalitis [Unknown]
  - Infection [Unknown]
  - Gastric infection [Unknown]
